FAERS Safety Report 4649513-8 (Version None)
Quarter: 2005Q2

REPORT INFORMATION
  Report Type: 
  Country: None (occurrence: None)
  Receive Date: 20050428
  Receipt Date: 20050428
  Transmission Date: 20051028
  Serious: Yes (Life-Threatening)
  Sender: FDA-Public Use
  Company Number: None

PATIENT
  Sex: Male

DRUGS (4)
  1. CISPLATIN [Suspect]
     Indication: PRIMITIVE NEUROECTODERMAL TUMOUR
     Dosage: 3.5MG/KG X 5 DOSES
     Dates: start: 19990501, end: 19990901
  2. VINCRISTINE [Suspect]
     Indication: PRIMITIVE NEUROECTODERMAL TUMOUR
     Dosage: 0.5MG/KG X 8 DOSES
     Dates: start: 19990501, end: 19990901
  3. ETOPOSIDE [Suspect]
     Indication: PRIMITIVE NEUROECTODERMAL TUMOUR
     Dosage: 4MG/KG X 10 DOSES
     Dates: start: 19990501, end: 19990901
  4. CYTOXAN [Suspect]
     Indication: PRIMITIVE NEUROECTODERMAL TUMOUR
     Dosage: 65MG/KG X 10 DOSES
     Dates: start: 19990501, end: 19990901

REACTIONS (1)
  - STEM CELL TRANSPLANT [None]
